FAERS Safety Report 5662913-2 (Version None)
Quarter: 2008Q1

REPORT INFORMATION
  Report Type: 
  Country: None (occurrence: None)
  Receive Date: 20080313
  Receipt Date: 20080305
  Transmission Date: 20080703
  Serious: Yes (Other)
  Sender: FDA-Public Use
  Company Number: US-BAYER-200714159BCC

PATIENT
  Age: 58 Year
  Sex: Female
  Weight: 84 kg

DRUGS (14)
  1. ALEVE [Suspect]
     Indication: ANALGESIA
     Dosage: TOTAL DAILY DOSE: 440 MG  UNIT DOSE: 220 MG
     Route: 048
     Dates: start: 20071212
  2. ASPIRIN [Suspect]
     Indication: ISCHAEMIC HEART DISEASE PROPHYLAXIS
     Dosage: TOTAL DAILY DOSE: 325 MG  UNIT DOSE: 325 MG
     Route: 048
  3. VICODIN [Concomitant]
  4. METAFORMIN [Concomitant]
  5. FUROSEMIDE [Concomitant]
  6. COZAAR [Concomitant]
  7. GABAPENTIN [Concomitant]
  8. BUPROPION HCL [Concomitant]
  9. ATENOLOL [Concomitant]
  10. FINZAFTATIN [Concomitant]
  11. KLOR-CON [Concomitant]
  12. AMLODIPINE [Concomitant]
  13. AMBIEN [Concomitant]
  14. AUGMENTIN '125' [Concomitant]

REACTIONS (1)
  - BLOOD GLUCOSE INCREASED [None]
